FAERS Safety Report 17377503 (Version 2)
Quarter: 2021Q2

REPORT INFORMATION
  Report Type: Spontaneous
  Country: US (occurrence: US)
  Receive Date: 20200206
  Receipt Date: 20210630
  Transmission Date: 20210716
  Serious: Yes (Other)
  Sender: FDA-Public Use
  Company Number: US-PFIZER INC-2020049237

PATIENT
  Age: 59 Year
  Sex: Female

DRUGS (2)
  1. XELJANZ [Suspect]
     Active Substance: TOFACITINIB CITRATE
     Indication: UVEITIS
     Dosage: 5 MG, 2X/DAY
     Dates: end: 20160616
  2. XELJANZ [Suspect]
     Active Substance: TOFACITINIB CITRATE
     Dosage: 5 MG, 1X/DAY

REACTIONS (7)
  - Skin disorder [Unknown]
  - Off label use [Unknown]
  - Headache [Recovered/Resolved]
  - Drug effective for unapproved indication [Unknown]
  - Arthritis [Unknown]
  - Uveitis [Unknown]
  - Psoriasis [Unknown]
